FAERS Safety Report 6098736-2 (Version None)
Quarter: 2009Q1

REPORT INFORMATION
  Report Type: 
  Country: None (occurrence: None)
  Receive Date: 20090302
  Receipt Date: 20090218
  Transmission Date: 20090719
  Serious: Yes (Death, Other)
  Sender: FDA-Public Use
  Company Number: JP-PFIZER INC-2008161000

PATIENT

DRUGS (1)
  1. SUNITINIB MALATE [Suspect]
     Indication: RENAL CELL CARCINOMA
     Dosage: UNK
     Route: 048
     Dates: start: 20080101

REACTIONS (7)
  - DISEASE PROGRESSION [None]
  - GASTROINTESTINAL HAEMORRHAGE [None]
  - PALPITATIONS [None]
  - PLATELET COUNT DECREASED [None]
  - PLEURAL EFFUSION [None]
  - RED BLOOD CELL COUNT DECREASED [None]
  - RENAL CELL CARCINOMA [None]
